FAERS Safety Report 7728635-9 (Version None)
Quarter: 2011Q3

REPORT INFORMATION
  Report Type: 
  Country: None (occurrence: None)
  Receive Date: 20110831
  Receipt Date: 20110831
  Transmission Date: 20111222
  Serious: Yes (Other)
  Sender: FDA-Public Use
  Company Number: None

PATIENT

DRUGS (3)
  1. FLEXERIL [Concomitant]
  2. METFORMIN HCL [Concomitant]
  3. TRAMADOL HCL [Suspect]
     Dosage: 1 - 2 TABLETS EVERY 4 - 6 HOURS

REACTIONS (4)
  - PRODUCT SUBSTITUTION ISSUE [None]
  - ALTERED STATE OF CONSCIOUSNESS [None]
  - PRODUCT MEASURED POTENCY ISSUE [None]
  - THERAPEUTIC RESPONSE DECREASED [None]
